FAERS Safety Report 4676172-0 (Version None)
Quarter: 2005Q2

REPORT INFORMATION
  Report Type: 
  Country: None (occurrence: None)
  Receive Date: 20050527
  Receipt Date: 20050411
  Transmission Date: 20051028
  Serious: No
  Sender: FDA-Public Use
  Company Number: US-GLAXOSMITHKLINE-A0553565A

PATIENT
  Age: 60 Year
  Sex: Female

DRUGS (2)
  1. WELLBUTRIN XL [Suspect]
     Indication: DEPRESSION
     Dosage: 150MG IN THE MORNING
     Route: 048
     Dates: start: 20050330
  2. SYNTHROID [Concomitant]

REACTIONS (2)
  - DIARRHOEA [None]
  - WHEEZING [None]
